FAERS Safety Report 10757609 (Version 1)
Quarter: 2015Q1

REPORT INFORMATION
  Report Type: Report from Study
  Country: ID (occurrence: ID)
  Receive Date: 20150203
  Receipt Date: 20150203
  Transmission Date: 20150721
  Serious: Yes (Death, Hospitalization)
  Sender: FDA-Public Use
  Company Number: ID-BAYER-2015-012743

PATIENT
  Age: 73 Year
  Sex: Male

DRUGS (1)
  1. NEXAVAR [Suspect]
     Active Substance: SORAFENIB
     Indication: HEPATOCELLULAR CARCINOMA
     Dosage: 200 MG, QD
     Route: 048
     Dates: start: 20140814, end: 20140928

REACTIONS (1)
  - Abdominal pain [Fatal]

NARRATIVE: CASE EVENT DATE: 20140928
